FAERS Safety Report 20847199 (Version 4)
Quarter: 2023Q4

REPORT INFORMATION
  Report Type: Spontaneous
  Country: PK (occurrence: PK)
  Receive Date: 20220519
  Receipt Date: 20231128
  Transmission Date: 20240110
  Serious: Yes (Disabling)
  Sender: FDA-Public Use
  Company Number: PK-PFIZER INC-202101023993

PATIENT
  Age: 27 Year
  Sex: Female

DRUGS (13)
  1. ENBREL [Suspect]
     Active Substance: ETANERCEPT
     Indication: Peripheral spondyloarthritis
     Dosage: 50 MG, EVERY TWO WEEKS
     Route: 058
  2. ENBREL [Suspect]
     Active Substance: ETANERCEPT
     Dosage: 50 MG, WEEKLY
     Route: 058
     Dates: start: 20210809
  3. FOLIC ACID [Concomitant]
     Active Substance: FOLIC ACID
     Dosage: 5 MG, 1X/DAY
  4. XOBIX [Concomitant]
     Dosage: 1 DF, AS NEEDED
  5. XOBIX [Concomitant]
     Dosage: 15 MG, DAILY(1+0+0+0, AFTER MEAL, 1 TAB IN MORNING AFTER MEAL FOR 2 WEEKS)
  6. Sunny d [Concomitant]
     Dosage: 1 DF, MONTHLY
  7. DELTACORTRIL [Concomitant]
     Active Substance: PREDNISOLONE
     Dosage: 1 DF, 2+0+0+0, AFTER MEAL, 2 TAB IN MORNING AFTER MEAL FOR 1 WEEK
  8. DELTACORTRIL [Concomitant]
     Active Substance: PREDNISOLONE
     Dosage: 2+1+0+0, AFTER MEAL, 2+1 IN MORNING AND AFTERNOON AFTER MEAL FOR 1 WEEK
  9. DELTACORTRIL [Concomitant]
     Active Substance: PREDNISOLONE
     Dosage: UNK
  10. DELTACORTRIL [Concomitant]
     Active Substance: PREDNISOLONE
     Dosage: UNK
  11. DELTACORTRIL [Concomitant]
     Active Substance: PREDNISOLONE
     Dosage: 1 DOSAGE FORM
  12. DELTACORTRIL [Concomitant]
     Active Substance: PREDNISOLONE
     Dosage: 1 UNK  *SINGLE *SINGLE *SINGLE *SINGLE
  13. Risek [Concomitant]
     Dosage: 20 MILLIGRAM

REACTIONS (5)
  - Joint swelling [Unknown]
  - Arthralgia [Unknown]
  - Arthritis [Unknown]
  - Infection [Unknown]
  - Off label use [Unknown]
